FAERS Safety Report 21873483 (Version 1)
Quarter: 2023Q1

REPORT INFORMATION
  Report Type: Spontaneous
  Country: US (occurrence: US)
  Receive Date: 20230117
  Receipt Date: 20230117
  Transmission Date: 20230418
  Serious: Yes (Death, Other)
  Sender: FDA-Public Use
  Company Number: US-OTSUKA-2023_000649

PATIENT
  Age: 23 Year
  Sex: Female

DRUGS (5)
  1. DECITABINE [Suspect]
     Active Substance: DECITABINE
     Indication: Chloroma
     Dosage: UNK
     Route: 065
  2. DECITABINE [Suspect]
     Active Substance: DECITABINE
     Dosage: 2ND CYCLE
     Route: 065
  3. VENETOCLAX [Suspect]
     Active Substance: VENETOCLAX
     Indication: Chloroma
     Dosage: UNK
     Route: 065
  4. VENETOCLAX [Suspect]
     Active Substance: VENETOCLAX
     Dosage: 2ND CYCLE
     Route: 065
  5. TACROLIMUS [Concomitant]
     Active Substance: TACROLIMUS
     Indication: Product used for unknown indication
     Dosage: UNK
     Route: 065

REACTIONS (9)
  - Epstein-Barr virus infection reactivation [Fatal]
  - Smooth muscle cell neoplasm [Fatal]
  - Neoplasm progression [Fatal]
  - Cardiac arrest [Fatal]
  - Acute respiratory distress syndrome [Fatal]
  - Pulmonary haemorrhage [Fatal]
  - Pneumothorax [Fatal]
  - Pneumonia [Fatal]
  - Product use in unapproved indication [Unknown]
